FAERS Safety Report 5492267-6 (Version None)
Quarter: 2007Q4

REPORT INFORMATION
  Report Type: 
  Country: None (occurrence: None)
  Receive Date: 20071015
  Receipt Date: 20070706
  Transmission Date: 20080405
  Serious: No
  Sender: FDA-Public Use
  Company Number: 2007SP002483

PATIENT
  Age: 46 Year
  Sex: Male

DRUGS (5)
  1. LUNESTA [Suspect]
     Indication: INSOMNIA
     Dosage: ORAL
     Route: 048
     Dates: start: 20070101
  2. PEGASYS [Concomitant]
  3. RIBAVIRIN [Concomitant]
  4. TEGRETOL [Concomitant]
  5. DEPAKOTE [Concomitant]

REACTIONS (1)
  - INSOMNIA [None]
